FAERS Safety Report 7447727-5 (Version None)
Quarter: 2011Q2

REPORT INFORMATION
  Report Type: 
  Country: None (occurrence: None)
  Receive Date: 20110429
  Receipt Date: 20101109
  Transmission Date: 20111010
  Serious: No
  Sender: FDA-Public Use
  Company Number: US-ASTRAZENECA-2010SE39725

PATIENT
  Age: 53 Year
  Sex: Female
  Weight: 45.4 kg

DRUGS (8)
  1. PRILOSEC [Suspect]
     Indication: GASTROOESOPHAGEAL REFLUX DISEASE
     Route: 048
     Dates: start: 19910101, end: 20010101
  2. VITAMIN D [Concomitant]
  3. NEXIUM [Suspect]
     Route: 048
     Dates: start: 20010101
  4. PEPCID [Concomitant]
  5. NEXIUM [Suspect]
     Indication: GASTROOESOPHAGEAL REFLUX DISEASE
     Route: 048
     Dates: start: 20010101
  6. NEXIUM [Suspect]
     Route: 048
     Dates: start: 20010101
  7. NEXIUM [Suspect]
     Indication: HIATUS HERNIA
     Route: 048
     Dates: start: 20010101
  8. CALCIUM [Concomitant]

REACTIONS (11)
  - TREATMENT NONCOMPLIANCE [None]
  - DRUG DEPENDENCE [None]
  - ALOPECIA [None]
  - MALAISE [None]
  - GASTROOESOPHAGEAL REFLUX DISEASE [None]
  - DRUG DOSE OMISSION [None]
  - DYSPEPSIA [None]
  - OSTEOPOROSIS [None]
  - BONE DENSITY DECREASED [None]
  - DRUG INEFFECTIVE [None]
  - ABDOMINAL DISCOMFORT [None]
